FAERS Safety Report 5064905-3 (Version None)
Quarter: 2006Q3

REPORT INFORMATION
  Report Type: 
  Country: None (occurrence: None)
  Receive Date: 20060726
  Receipt Date: 20060717
  Transmission Date: 20061208
  Serious: Yes (Other)
  Sender: FDA-Public Use
  Company Number: 225712

PATIENT
  Age: 43 Year
  Sex: Female

DRUGS (1)
  1. MABTHERA (RITUXIMAB) CONC FOR SOLUTION FOR INFUSION [Suspect]
     Indication: DERMATOMYOSITIS
     Dosage: INTRAVENOUS

REACTIONS (2)
  - CARDIAC FAILURE [None]
  - VASCULITIS [None]
